FAERS Safety Report 17888298 (Version 1)
Quarter: 2020Q2

REPORT INFORMATION
  Report Type: Spontaneous
  Country: PT (occurrence: PT)
  Receive Date: 20200612
  Receipt Date: 20200612
  Transmission Date: 20200714
  Serious: Yes (Death)
  Sender: FDA-Public Use
  Company Number: PT-ACCORD-185046

PATIENT
  Age: 67 Year
  Sex: Female

DRUGS (3)
  1. CAPECITABINE. [Concomitant]
     Active Substance: CAPECITABINE
     Indication: CHEMOTHERAPY
  2. ANASTROZOLE. [Suspect]
     Active Substance: ANASTROZOLE
     Indication: INVASIVE DUCTAL BREAST CARCINOMA
     Route: 048
  3. ACITRETIN. [Concomitant]
     Active Substance: ACITRETIN
     Indication: DERMATITIS

REACTIONS (2)
  - Metastases to lymph nodes [Fatal]
  - Metastases to pleura [Fatal]
